FAERS Safety Report 23269681 (Version 1)
Quarter: 2023Q4

REPORT INFORMATION
  Report Type: Spontaneous
  Country: DE (occurrence: DE)
  Receive Date: 20231207
  Receipt Date: 20231207
  Transmission Date: 20240110
  Serious: Yes (Other)
  Sender: FDA-Public Use
  Company Number: DE-ABBVIE-5500944

PATIENT
  Age: 47 Year
  Sex: Female

DRUGS (2)
  1. ADALIMUMAB [Suspect]
     Active Substance: ADALIMUMAB\ISOPROPYL ALCOHOL
     Indication: Product used for unknown indication
     Dosage: UNK
     Route: 058
  2. RINVOQ [Suspect]
     Active Substance: UPADACITINIB
     Indication: Product used for unknown indication
     Dosage: UNK
     Route: 048
     Dates: start: 202211

REACTIONS (18)
  - Pseudomonas infection [Unknown]
  - Polychondritis [Unknown]
  - Erythema [Unknown]
  - Red ear syndrome [Unknown]
  - Musculoskeletal chest pain [Unknown]
  - Ear inflammation [Unknown]
  - Wound [Unknown]
  - Ear pain [Unknown]
  - Swelling [Unknown]
  - Feeling hot [Unknown]
  - Stress [Unknown]
  - Somatic symptom disorder [Unknown]
  - Somatic symptom disorder [Unknown]
  - Ear discomfort [Unknown]
  - Infected skin ulcer [Unknown]
  - Ear infection bacterial [Unknown]
  - Drug ineffective [Unknown]
  - Herpes zoster [Unknown]

NARRATIVE: CASE EVENT DATE: 20230101
